FAERS Safety Report 25714962 (Version 2)
Quarter: 2025Q4

REPORT INFORMATION
  Report Type: Spontaneous
  Country: CA (occurrence: CA)
  Receive Date: 20250822
  Receipt Date: 20251016
  Transmission Date: 20260117
  Serious: Yes (Other)
  Sender: PFIZER
  Company Number: CA-PFIZER INC-202500146597

PATIENT
  Age: 62 Year
  Sex: Female

DRUGS (6)
  1. SOMAVERT [Suspect]
     Active Substance: PEGVISOMANT
     Indication: Acromegaly
     Dosage: 15 MG, 1X/DAY
     Route: 058
     Dates: start: 20150805, end: 2016
  2. SOMAVERT [Suspect]
     Active Substance: PEGVISOMANT
     Dosage: 20 MG, 1X/DAY (DISCONTINUED)
     Route: 058
     Dates: start: 2016
  3. SOMAVERT [Suspect]
     Active Substance: PEGVISOMANT
     Dosage: 25 MG, 1X/DAY
     Route: 058
  4. ADVIL [Concomitant]
     Active Substance: IBUPROFEN
     Dosage: 200MG-400 MG PRN
  5. TYLENOL ARTHRITIS PAIN [Concomitant]
     Active Substance: ACETAMINOPHEN
     Dosage: 2 TABLETS IN THE MORNING AND 1 IN THE AFTERNOON
  6. VAGIFEM [Concomitant]
     Active Substance: ESTRADIOL
     Dosage: VAGIFEM 10; 1 DF, 2X/WEEK

REACTIONS (3)
  - Atrial fibrillation [Unknown]
  - Vitamin B12 decreased [Unknown]
  - Fatigue [Unknown]

NARRATIVE: CASE EVENT DATE: 20250101
